FAERS Safety Report 5216814-4 (Version None)
Quarter: 2007Q1

REPORT INFORMATION
  Report Type: 
  Country: None (occurrence: None)
  Receive Date: 20070119
  Receipt Date: 20070111
  Transmission Date: 20070707
  Serious: Yes (Hospitalization)
  Sender: FDA-Public Use
  Company Number: S07-USA-00148-01

PATIENT
  Age: 66 Year
  Sex: Female

DRUGS (2)
  1. CELEXA [Suspect]
     Indication: BIPOLAR DISORDER
     Dosage: 10 MG QD PO
     Route: 048
     Dates: start: 20040101
  2. ACARBOSE [Concomitant]

REACTIONS (2)
  - BLOOD SODIUM INCREASED [None]
  - GENERALISED OEDEMA [None]
